FAERS Safety Report 4715135-3 (Version None)
Quarter: 2005Q3

REPORT INFORMATION
  Report Type: 
  Country: None (occurrence: None)
  Receive Date: 20050715
  Receipt Date: 20050713
  Transmission Date: 20060218
  Serious: Yes (Hospitalization)
  Sender: FDA-Public Use
  Company Number: US-GLAXOSMITHKLINE-A0566083A

PATIENT
  Age: 19 Year
  Sex: Female

DRUGS (2)
  1. LAMICTAL [Suspect]
     Indication: BIPOLAR DISORDER
     Dosage: 25MG PER DAY
     Route: 048
     Dates: start: 20050707, end: 20050701
  2. NO CONCURRENT MEDICATION [Concomitant]

REACTIONS (3)
  - DEHYDRATION [None]
  - HEADACHE [None]
  - VOMITING [None]
